FAERS Safety Report 13472543 (Version 1)
Quarter: 2017Q2

REPORT INFORMATION
  Report Type: Spontaneous
  Country: AU (occurrence: AU)
  Receive Date: 20170424
  Receipt Date: 20170424
  Transmission Date: 20170830
  Serious: Yes (Other)
  Sender: FDA-Public Use
  Company Number: AU-PFIZER INC-2017047160

PATIENT
  Age: 35 Year
  Sex: Female

DRUGS (3)
  1. PRISTIQ EXTENDED-RELEASE [Suspect]
     Active Substance: DESVENLAFAXINE SUCCINATE
     Indication: ANXIETY
     Dosage: UNK
     Dates: start: 201608
  2. PRISTIQ EXTENDED-RELEASE [Suspect]
     Active Substance: DESVENLAFAXINE SUCCINATE
     Dosage: 12.5 MG, DAILY
  3. PRISTIQ EXTENDED-RELEASE [Suspect]
     Active Substance: DESVENLAFAXINE SUCCINATE
     Dosage: 25 MG, DAILY

REACTIONS (5)
  - Foetal death [Unknown]
  - Paraesthesia [Unknown]
  - Fatigue [Unknown]
  - Drug ineffective [Unknown]
  - Drug prescribing error [Unknown]
